FAERS Safety Report 11061132 (Version 3)
Quarter: 2015Q2

REPORT INFORMATION
  Report Type: Spontaneous
  Country: FR (occurrence: FR)
  Receive Date: 20150424
  Receipt Date: 20150608
  Transmission Date: 20150821
  Serious: Yes (Death)
  Sender: FDA-Public Use
  Company Number: FR-ROCHE-1566752

PATIENT
  Age: 65 Year
  Sex: Male

DRUGS (12)
  1. MABTHERA [Suspect]
     Active Substance: RITUXIMAB
     Indication: CHRONIC LYMPHOCYTIC LEUKAEMIA
     Dosage: CYCLE 1
     Route: 042
     Dates: start: 20141021
  2. METFORMIN [Concomitant]
     Active Substance: METFORMIN HYDROCHLORIDE
  3. ZYDELIG [Suspect]
     Active Substance: IDELALISIB
     Dosage: CYCLE1
     Route: 048
     Dates: start: 20141021
  4. FASTURTEC [Concomitant]
     Active Substance: RASBURICASE
     Dosage: FIRST COURSE; 1.5 MG/ML ON D1 AND D2
     Route: 042
     Dates: start: 20141022, end: 20141023
  5. ZYDELIG [Suspect]
     Active Substance: IDELALISIB
     Dosage: CYCLE 3
     Route: 048
     Dates: start: 20141202
  6. ZYDELIG [Suspect]
     Active Substance: IDELALISIB
     Dosage: CYCLE 4
     Route: 048
     Dates: start: 20141216, end: 20141216
  7. MABTHERA [Suspect]
     Active Substance: RITUXIMAB
     Dosage: CYCLE 3
     Route: 042
     Dates: start: 20141202
  8. MABTHERA [Suspect]
     Active Substance: RITUXIMAB
     Dosage: CYCLE 4
     Route: 042
     Dates: start: 20141216, end: 20141216
  9. GLUCOPHAGE [Concomitant]
     Active Substance: METFORMIN HYDROCHLORIDE
     Indication: TYPE 2 DIABETES MELLITUS
     Route: 048
  10. MABTHERA [Suspect]
     Active Substance: RITUXIMAB
     Dosage: CYCLE 2
     Route: 042
     Dates: start: 20141018
  11. ZYDELIG [Suspect]
     Active Substance: IDELALISIB
     Indication: CHRONIC LYMPHOCYTIC LEUKAEMIA
     Dosage: 0.1333 DF, CYCLE 2
     Route: 048
     Dates: start: 20141118
  12. DOXYCYCLINE. [Suspect]
     Active Substance: DOXYCYCLINE
     Indication: PRODUCT USED FOR UNKNOWN INDICATION
     Route: 065
     Dates: start: 20141217

REACTIONS (6)
  - Respiratory failure [Fatal]
  - Hypotension [Fatal]
  - Cardiac arrest [Fatal]
  - Rash vesicular [Fatal]
  - Face oedema [Fatal]
  - Rash maculo-papular [Fatal]

NARRATIVE: CASE EVENT DATE: 20141223
